FAERS Safety Report 14071364 (Version 1)
Quarter: 2017Q4

REPORT INFORMATION
  Report Type: Spontaneous
  Country: US (occurrence: US)
  Receive Date: 20171010
  Receipt Date: 20171010
  Transmission Date: 20180321
  Serious: No
  Sender: FDA-Public Use
  Company Number: US-JNJFOC-20170817910

PATIENT
  Age: 5 Year
  Sex: Female
  Weight: 19.05 kg

DRUGS (4)
  1. IBUPORFEN [Suspect]
     Active Substance: IBUPROFEN
     Indication: PRURITUS
     Route: 065
     Dates: start: 20170811
  2. IBUPORFEN [Suspect]
     Active Substance: IBUPROFEN
     Indication: NAUSEA
     Route: 065
     Dates: start: 20170811
  3. CHILDRENS BENADRYL ALLERGY [Concomitant]
     Active Substance: DIPHENHYDRAMINE HYDROCHLORIDE
     Indication: MULTIPLE ALLERGIES
     Route: 065
     Dates: start: 20170811
  4. CHILDRENS BENADRYL ALLERGY [Concomitant]
     Active Substance: DIPHENHYDRAMINE HYDROCHLORIDE
     Indication: MULTIPLE ALLERGIES
     Dosage: FROM YEARS
     Route: 065

REACTIONS (2)
  - Wheezing [Not Recovered/Not Resolved]
  - Drug ineffective for unapproved indication [Unknown]

NARRATIVE: CASE EVENT DATE: 20170811
